FAERS Safety Report 21816647 (Version 6)
Quarter: 2023Q2

REPORT INFORMATION
  Report Type: Report from Study
  Country: US (occurrence: US)
  Receive Date: 20230104
  Receipt Date: 20230408
  Transmission Date: 20230721
  Serious: Yes (Other)
  Sender: FDA-Public Use
  Company Number: US-002147023-NVSC2023US001456

PATIENT
  Sex: Female

DRUGS (1)
  1. GILENYA [Suspect]
     Active Substance: FINGOLIMOD HYDROCHLORIDE
     Indication: Product used for unknown indication
     Dosage: 0.5 MG, QD
     Route: 065

REACTIONS (12)
  - Syncope [Unknown]
  - Paraesthesia [Unknown]
  - COVID-19 [Unknown]
  - Feeling abnormal [Unknown]
  - Condition aggravated [Unknown]
  - Stress [Unknown]
  - Fall [Unknown]
  - Contusion [Unknown]
  - Pharyngitis streptococcal [Unknown]
  - Diarrhoea [Unknown]
  - White blood cell count decreased [Unknown]
  - Product dose omission issue [Unknown]
